FAERS Safety Report 5268233-2 (Version None)
Quarter: 2007Q1

REPORT INFORMATION
  Report Type: 
  Country: None (occurrence: None)
  Receive Date: 20070314
  Receipt Date: 20070314
  Transmission Date: 20070707
  Serious: Yes (Hospitalization)
  Sender: FDA-Public Use
  Company Number: None

PATIENT
  Age: 62 Year
  Sex: Female

DRUGS (2)
  1. DILAUDID [Suspect]
     Indication: HIP FRACTURE
  2. LORTAB [Suspect]

REACTIONS (4)
  - DEPRESSED LEVEL OF CONSCIOUSNESS [None]
  - HIP FRACTURE [None]
  - HYPOTENSION [None]
  - RESPIRATORY DEPRESSION [None]
